FAERS Safety Report 15621605 (Version 2)
Quarter: 2018Q4

REPORT INFORMATION
  Report Type: Spontaneous
  Country: US (occurrence: US)
  Receive Date: 20181115
  Receipt Date: 20181211
  Transmission Date: 20190205
  Serious: No
  Sender: FDA-Public Use
  Company Number: US-GLAXOSMITHKLINE-US2018201199

PATIENT
  Age: 72 Year
  Sex: Female

DRUGS (1)
  1. BREO ELLIPTA [Suspect]
     Active Substance: FLUTICASONE FUROATE\VILANTEROL TRIFENATATE
     Indication: ASTHMA
     Dosage: 1 PUFF(S), UNK
     Route: 055
     Dates: start: 2018

REACTIONS (8)
  - Drug ineffective [Not Recovered/Not Resolved]
  - Product dose omission [Unknown]
  - Chest discomfort [Not Recovered/Not Resolved]
  - Drug effect decreased [Unknown]
  - Asthma [Unknown]
  - Wheezing [Recovered/Resolved]
  - Expired product administered [Unknown]
  - Product complaint [Unknown]

NARRATIVE: CASE EVENT DATE: 20181102
